FAERS Safety Report 5360066-1 (Version None)
Quarter: 2007Q2

REPORT INFORMATION
  Report Type: 
  Country: None (occurrence: None)
  Receive Date: 20070618
  Receipt Date: 20061006
  Transmission Date: 20071010
  Serious: No
  Sender: FDA-Public Use
  Company Number: US-ASTRAZENECA-2006UW24266

PATIENT
  Age: 52 Year
  Sex: Female

DRUGS (3)
  1. FASLODEX [Suspect]
     Route: 030
  2. PROZAC [Concomitant]
  3. MULTIVITAMIN [Concomitant]

REACTIONS (5)
  - INJECTION SITE ERYTHEMA [None]
  - INJECTION SITE INFLAMMATION [None]
  - INJECTION SITE PRURITUS [None]
  - INJECTION SITE REACTION [None]
  - INJECTION SITE SWELLING [None]
